FAERS Safety Report 4936327-4 (Version None)
Quarter: 2006Q1

REPORT INFORMATION
  Report Type: 
  Country: None (occurrence: None)
  Receive Date: 20060127
  Receipt Date: 20051121
  Transmission Date: 20060701
  Serious: Yes (Other)
  Sender: FDA-Public Use
  Company Number: 2005160116

PATIENT
  Age: 69 Year
  Sex: Male
  Weight: 68.0396 kg

DRUGS (8)
  1. LYRICA [Suspect]
     Indication: BACK PAIN
     Dosage: 225 MG (75 MG, 2 IN 1 D), ORAL
     Route: 048
     Dates: start: 20051109
  2. OXYCONTIN [Suspect]
     Indication: BACK PAIN
  3. QUINAPRIL [Concomitant]
  4. AMARYL [Concomitant]
  5. STOOL SOFTENER (DOCUSATE SODIUM) [Concomitant]
  6. MILK OF MAGNESIA (MAGNESIA HYDROXIDE) [Concomitant]
  7. EXTRA STRENGTH TYLENOL [Concomitant]
  8. COUMADIN [Concomitant]

REACTIONS (3)
  - BACK PAIN [None]
  - CONDITION AGGRAVATED [None]
  - DRUG INEFFECTIVE [None]
